FAERS Safety Report 16654508 (Version 1)
Quarter: 2019Q3

REPORT INFORMATION
  Report Type: Spontaneous
  Country: US (occurrence: US)
  Receive Date: 20190731
  Receipt Date: 20190731
  Transmission Date: 20191004
  Serious: No
  Sender: FDA-Public Use
  Company Number: US-ELI_LILLY_AND_COMPANY-US201907010860

PATIENT
  Sex: Female

DRUGS (3)
  1. GLYBURIDE. [Concomitant]
     Active Substance: GLYBURIDE
     Indication: TYPE 2 DIABETES MELLITUS
     Dosage: 2 MG, BID
     Route: 065
  2. BASAGLAR [Suspect]
     Active Substance: INSULIN GLARGINE
     Indication: TYPE 2 DIABETES MELLITUS
     Dosage: 20 U, UNKNOWN
     Route: 065
     Dates: start: 201905
  3. BASAGLAR [Suspect]
     Active Substance: INSULIN GLARGINE
     Dosage: 30 U, UNKNOWN
     Route: 065
     Dates: start: 201905

REACTIONS (3)
  - Glycosylated haemoglobin increased [Unknown]
  - Stress [Unknown]
  - Diabetes mellitus inadequate control [Unknown]
